FAERS Safety Report 7472785-1 (Version None)
Quarter: 2011Q2

REPORT INFORMATION
  Report Type: 
  Country: None (occurrence: None)
  Receive Date: 20110511
  Receipt Date: 20110502
  Transmission Date: 20111010
  Serious: Yes (Hospitalization, Other)
  Sender: FDA-Public Use
  Company Number: DE-ASTRAZENECA-2011SE25839

PATIENT
  Age: 47 Year
  Sex: Male
  Weight: 79 kg

DRUGS (1)
  1. SEROQUEL XR [Suspect]
     Dosage: 200-300 MG DAILY PER OS, BREAK: 25 FEB 2011
     Route: 048
     Dates: start: 20110214, end: 20110302

REACTIONS (1)
  - HEPATITIS ACUTE [None]
